FAERS Safety Report 19123691 (Version 4)
Quarter: 2023Q1

REPORT INFORMATION
  Report Type: Report from Study
  Country: IL (occurrence: IL)
  Receive Date: 20210412
  Receipt Date: 20230106
  Transmission Date: 20230417
  Serious: Yes (Hospitalization)
  Sender: FDA-Public Use
  Company Number: IL-KARYOPHARM-2021KPT000370

PATIENT
  Age: 69 Year
  Sex: Male
  Weight: 58.6 kg

DRUGS (11)
  1. SELINEXOR [Suspect]
     Active Substance: SELINEXOR
     Indication: Non-small cell lung cancer
     Dosage: 60 MG, WEEKLY
     Route: 048
     Dates: start: 20210111, end: 20210315
  2. DOCETAXEL [Suspect]
     Active Substance: DOCETAXEL
     Indication: Non-small cell lung cancer
     Dosage: 75 MG/M2, 1X/3 WEEKS
     Route: 042
     Dates: start: 20210111, end: 20210228
  3. DOCETAXEL [Suspect]
     Active Substance: DOCETAXEL
     Dosage: 58 MG/M2, 1X/3 WEEKS
     Route: 042
     Dates: start: 20210301
  4. LEVOTHYROXINE [Concomitant]
     Active Substance: LEVOTHYROXINE
     Indication: Hypothyroidism
     Dosage: 50 MG, QD
     Route: 048
     Dates: start: 2013
  5. OLANZAPINE [Concomitant]
     Active Substance: OLANZAPINE
     Indication: Nausea
     Dosage: 5 MG, QD
     Route: 048
     Dates: start: 20210111
  6. PREDNISONE [Concomitant]
     Active Substance: PREDNISONE
     Indication: Decreased appetite
     Dosage: 20 MG, QD
     Route: 048
     Dates: start: 20210209
  7. ZOFRAN [Concomitant]
     Active Substance: ONDANSETRON HYDROCHLORIDE
     Indication: Nausea
     Dosage: 8 MG, PRN
     Route: 048
     Dates: start: 20210111
  8. DEXAMETHASONE [Concomitant]
     Active Substance: DEXAMETHASONE
     Indication: Premedication
     Dosage: EVERY 21 DAYS
     Dates: start: 20210110
  9. DEXAMETHASONE [Concomitant]
     Active Substance: DEXAMETHASONE
     Dosage: 8 MG, SINGLE
     Route: 048
     Dates: start: 20210228, end: 20210228
  10. DEXAMETHASONE [Concomitant]
     Active Substance: DEXAMETHASONE
     Dosage: 8 MG, SINGLE
     Route: 048
     Dates: start: 20210301, end: 20210301
  11. CANNABIS SATIVA SUBSP. INDICA TOP [Concomitant]
     Active Substance: CANNABIS SATIVA SUBSP. INDICA TOP
     Indication: Product used for unknown indication
     Dosage: UNK, PRN
     Route: 048

REACTIONS (1)
  - Syncope [Recovered/Resolved]

NARRATIVE: CASE EVENT DATE: 20210315
